FAERS Safety Report 5055877-6 (Version None)
Quarter: 2006Q3

REPORT INFORMATION
  Report Type: 
  Country: None (occurrence: None)
  Receive Date: 20060717
  Receipt Date: 20060717
  Transmission Date: 20061208
  Serious: Yes (Disabling)
  Sender: FDA-Public Use
  Company Number: None

PATIENT
  Age: 13 Month
  Sex: Female
  Weight: 8.1647 kg

DRUGS (2)
  1. ZITHROMAX [Suspect]
     Indication: EAR INFECTION
     Dosage: 1 TEASPOON 2X A DAY PO
     Route: 048
     Dates: start: 20060206, end: 20060208
  2. AUGENTEN (AHOULD HAVE BEEN) [Suspect]

REACTIONS (4)
  - CONDITION AGGRAVATED [None]
  - DRUG DISPENSING ERROR [None]
  - EAR INFECTION [None]
  - WRONG DRUG ADMINISTERED [None]
